FAERS Safety Report 21845187 (Version 1)
Quarter: 2023Q1

REPORT INFORMATION
  Report Type: Spontaneous
  Country: DE (occurrence: DE)
  Receive Date: 20230110
  Receipt Date: 20230110
  Transmission Date: 20230417
  Serious: Yes (Hospitalization)
  Sender: FDA-Public Use
  Company Number: DE-BFARM-22009975

PATIENT
  Age: 77 Year
  Sex: Female

DRUGS (6)
  1. VALSARTAN [Suspect]
     Active Substance: VALSARTAN
     Indication: Hypertension
     Dosage: 40 MILLIGRAM, BID, 40MG-0-40MG FOR ABOUT 1.5 YEARS
     Route: 065
  2. VALSARTAN [Suspect]
     Active Substance: VALSARTAN
     Indication: Arrhythmia
  3. FLECAINIDE ACETATE [Suspect]
     Active Substance: FLECAINIDE ACETATE
     Indication: Product used for unknown indication
     Dosage: 1-0-1 FOR ABOUT 2.5 YEARS
     Route: 065
  4. FLECAINIDE ACETATE [Suspect]
     Active Substance: FLECAINIDE ACETATE
     Dosage: 50 MILLIGRAM, BID
     Route: 065
     Dates: start: 202212
  5. Eliquis 5 mg Filmtabletten [Concomitant]
     Indication: Product used for unknown indication
     Dosage: 5 MILLIGRAM, BID, 40MG-0-40MG FOR ABOUT 1.5 YEARS
     Route: 065
     Dates: start: 2021
  6. Bisoprolol Dexcel 5 mg [Concomitant]
     Indication: Product used for unknown indication
     Dosage: 5 MILLIGRAM, BID, 1-0-1 FOR ABOUT 2.5 YEARS
     Route: 065

REACTIONS (7)
  - Throat tightness [Not Recovered/Not Resolved]
  - Abdominal pain [Not Recovered/Not Resolved]
  - Pollakiuria [Not Recovered/Not Resolved]
  - Abdominal distension [Not Recovered/Not Resolved]
  - Abdominal pain upper [Not Recovered/Not Resolved]
  - Frequent bowel movements [Not Recovered/Not Resolved]
  - Condition aggravated [Not Recovered/Not Resolved]

NARRATIVE: CASE EVENT DATE: 20210101
